FAERS Safety Report 23476395 (Version 1)
Quarter: 2024Q1

REPORT INFORMATION
  Report Type: Report from Study
  Country: US (occurrence: US)
  Receive Date: 20240204
  Receipt Date: 20240204
  Transmission Date: 20240409
  Serious: No
  Sender: FDA-Public Use
  Company Number: US-EXELIXIS-CABO-23063041

PATIENT
  Sex: Male

DRUGS (22)
  1. CABOMETYX [Suspect]
     Active Substance: CABOZANTINIB S-MALATE
     Indication: Renal cancer
     Dosage: 40 MG, QD (20 MG, 2 TABLETS)
     Route: 048
  2. EVEROLIMUS [Suspect]
     Active Substance: EVEROLIMUS
     Indication: Renal cancer
     Dosage: UNK
  3. LENVIMA [Suspect]
     Active Substance: LENVATINIB
     Indication: Renal cancer
     Dosage: UNK
  4. CALCIUM [Concomitant]
     Active Substance: CALCIUM
  5. FISH OIL [Concomitant]
     Active Substance: FISH OIL
  6. MAGNESIUM [Concomitant]
     Active Substance: MAGNESIUM
  7. STOOL SOFTENER (DOCUSATE) [Concomitant]
     Active Substance: DOCUSATE
  8. ZINC [Concomitant]
     Active Substance: PYRITHIONE ZINC\ZINC\ZINC CHLORIDE
  9. AMBIEN [Concomitant]
     Active Substance: ZOLPIDEM TARTRATE
  10. ASPIRIN [Concomitant]
     Active Substance: ASPIRIN
  11. CLOPIDOGREL [Concomitant]
     Active Substance: CLOPIDOGREL BISULFATE
  12. ENTRESTO [Concomitant]
     Active Substance: SACUBITRIL\VALSARTAN
  13. GABAPENTIN [Concomitant]
     Active Substance: GABAPENTIN
  14. HYDROXYZINE [Concomitant]
     Active Substance: HYDROXYZINE HYDROCHLORIDE
  15. METOPROLOL SUCCINATE [Concomitant]
     Active Substance: METOPROLOL SUCCINATE
  16. OMEPRAZOLE [Concomitant]
     Active Substance: OMEPRAZOLE
  17. ROSUVASTATIN [Concomitant]
     Active Substance: ROSUVASTATIN
  18. VITAMIN B12 [Concomitant]
     Active Substance: CYANOCOBALAMIN
  19. VITAMIN D3 [Concomitant]
     Active Substance: CHOLECALCIFEROL
  20. ZOLOFT [Concomitant]
     Active Substance: SERTRALINE HYDROCHLORIDE
  21. ALLOPURINOL [Concomitant]
     Active Substance: ALLOPURINOL
  22. LIDOCAINE [Concomitant]
     Active Substance: LIDOCAINE

REACTIONS (8)
  - Cardiac disorder [Not Recovered/Not Resolved]
  - Rash pruritic [Recovering/Resolving]
  - Rash vesicular [Recovering/Resolving]
  - Nausea [Not Recovered/Not Resolved]
  - Dehydration [Not Recovered/Not Resolved]
  - Rash erythematous [Recovering/Resolving]
  - Blood potassium increased [Recovered/Resolved]
  - Blood creatine increased [Recovered/Resolved]
